FAERS Safety Report 17428754 (Version 2)
Quarter: 2020Q1

REPORT INFORMATION
  Report Type: Spontaneous
  Country: AR (occurrence: AR)
  Receive Date: 20200217
  Receipt Date: 20200221
  Transmission Date: 20200409
  Serious: No
  Sender: FDA-Public Use
  Company Number: AR-009507513-2002ARG005160

PATIENT
  Age: 58 Year
  Sex: Male

DRUGS (6)
  1. PRAMIPEXOLE. [Concomitant]
     Active Substance: PRAMIPEXOLE
     Dosage: 4.5 MILLIGRAM, QD
     Dates: start: 200610
  2. CARBIDOPA (+) ENTACAPONE (+) LEVODOPA [Concomitant]
     Active Substance: CARBIDOPA\ENTACAPONE\LEVODOPA
     Indication: PARKINSON^S DISEASE
     Dosage: UNK
  3. PRAMIPEXOLE. [Concomitant]
     Active Substance: PRAMIPEXOLE
     Indication: PARKINSON^S DISEASE
     Dosage: 1 MILLIGRAM, TID
  4. AMANTADINE. [Concomitant]
     Active Substance: AMANTADINE HYDROCHLORIDE
     Indication: PARKINSON^S DISEASE
     Dosage: 100 MILLIGRAM, TID
     Dates: start: 2008
  5. CARBIDOPA (+) LEVODOPA [Suspect]
     Active Substance: CARBIDOPA\LEVODOPA
     Indication: PARKINSON^S DISEASE
     Dosage: 1000/200 MG PER DAY
  6. BENSERAZIDE HYDROCHLORIDE (+) LEVODOPA [Concomitant]
     Active Substance: BENSERAZIDE\LEVODOPA
     Indication: PARKINSON^S DISEASE
     Dosage: 50/12.5 MG, TID
     Dates: end: 200610

REACTIONS (5)
  - Insomnia [Unknown]
  - Dopamine dysregulation syndrome [Unknown]
  - Hypersexuality [Unknown]
  - Paraphilia [Unknown]
  - Gambling disorder [Unknown]

NARRATIVE: CASE EVENT DATE: 200906
